FAERS Safety Report 9835952 (Version 1)
Quarter: 2014Q1

REPORT INFORMATION
  Report Type: Spontaneous
  Country: US (occurrence: US)
  Receive Date: 20140122
  Receipt Date: 20140122
  Transmission Date: 20141002
  Serious: Yes (Other)
  Sender: FDA-Public Use
  Company Number: CHPA2014US000929

PATIENT
  Sex: Female

DRUGS (1)
  1. BUCKLEY^S COUGH MIXTURE [Suspect]
     Indication: COUGH
     Route: 048

REACTIONS (2)
  - Hypoacusis [Unknown]
  - Nasopharyngitis [Unknown]
